FAERS Safety Report 10297847 (Version 5)
Quarter: 2015Q1

REPORT INFORMATION
  Report Type: Spontaneous
  Country: US (occurrence: US)
  Receive Date: 20140711
  Receipt Date: 20150312
  Transmission Date: 20150720
  Serious: Yes (Hospitalization, Congenital Anomaly)
  Sender: FDA-Public Use
  Company Number: US-ELI_LILLY_AND_COMPANY-US201407002730

PATIENT
  Age: 0 Year

DRUGS (1)
  1. FLUOXETINE HYDROCHLORIDE. [Suspect]
     Active Substance: FLUOXETINE HYDROCHLORIDE
     Indication: PRODUCT USED FOR UNKNOWN INDICATION
     Dosage: UNK, UNKNOWN
     Route: 064

REACTIONS (7)
  - Congenital aortic stenosis [Unknown]
  - Mitral valve prolapse [Unknown]
  - Patent ductus arteriosus [Unknown]
  - Mitral valve incompetence [Unknown]
  - Foetal exposure during pregnancy [Recovered/Resolved]
  - Cardiomegaly [Unknown]
  - Upper respiratory tract infection [Unknown]

NARRATIVE: CASE EVENT DATE: 2001
